FAERS Safety Report 5310066-2 (Version None)
Quarter: 2007Q2

REPORT INFORMATION
  Report Type: 
  Country: None (occurrence: None)
  Receive Date: 20070427
  Receipt Date: 20070419
  Transmission Date: 20071010
  Serious: Yes (Hospitalization)
  Sender: FDA-Public Use
  Company Number: FR-GLAXOSMITHKLINE-B0468108A

PATIENT
  Age: 84 Year
  Sex: Female

DRUGS (13)
  1. AUGMENTIN '125' [Suspect]
     Indication: BRONCHITIS
     Dosage: 1G TWICE PER DAY
     Route: 048
     Dates: start: 20070120
  2. PREVISCAN [Suspect]
     Indication: PHLEBITIS
     Dosage: 10MG PER DAY
     Route: 048
     Dates: end: 20070130
  3. LEVOTHYROXINE SODIUM [Concomitant]
     Indication: HYPOTHYROIDISM
     Dosage: 50MCG PER DAY
     Route: 048
  4. LASIX [Concomitant]
     Indication: BLOOD PRESSURE INCREASED
     Dosage: 40MG PER DAY
     Route: 048
  5. PNEUMOREL [Concomitant]
     Indication: BACTERIAL INFECTION
     Route: 048
     Dates: start: 20070120
  6. AMLOR [Concomitant]
     Indication: BLOOD PRESSURE INCREASED
     Dosage: 5MG PER DAY
     Route: 048
  7. SINEMET [Concomitant]
  8. EXELON [Concomitant]
  9. TARDYFERON [Concomitant]
  10. DEPAKOTE [Concomitant]
  11. STILNOX [Concomitant]
  12. TRANXENE [Concomitant]
  13. PARACETAMOL [Concomitant]

REACTIONS (15)
  - BLOOD CREATININE INCREASED [None]
  - BLOOD POTASSIUM INCREASED [None]
  - BLOOD SODIUM INCREASED [None]
  - BLOOD UREA INCREASED [None]
  - BRONCHIAL OBSTRUCTION [None]
  - C-REACTIVE PROTEIN INCREASED [None]
  - DECREASED APPETITE [None]
  - DRUG INTERACTION [None]
  - DYSPNOEA [None]
  - ESCHAR [None]
  - INTERNATIONAL NORMALISED RATIO INCREASED [None]
  - LUNG INFECTION [None]
  - OVERDOSE [None]
  - PYREXIA [None]
  - URINARY TRACT INFECTION [None]
